FAERS Safety Report 19080655 (Version 2)
Quarter: 2021Q3

REPORT INFORMATION
  Report Type: Spontaneous
  Country: US (occurrence: US)
  Receive Date: 20210331
  Receipt Date: 20210920
  Transmission Date: 20211014
  Serious: Yes (Hospitalization, Other)
  Sender: FDA-Public Use
  Company Number: US-GILEAD-2021-0523123

PATIENT
  Age: 52 Year
  Sex: Male
  Weight: 110 kg

DRUGS (30)
  1. DICYCLOMINE CO [Concomitant]
  2. COMBIVIR [Concomitant]
     Active Substance: LAMIVUDINE\ZIDOVUDINE
  3. CRIXIVAN [Concomitant]
     Active Substance: INDINAVIR SULFATE
  4. EPIVIR [Concomitant]
     Active Substance: LAMIVUDINE
  5. SUSTIVA [Concomitant]
     Active Substance: EFAVIRENZ
  6. TIVICAY [Concomitant]
     Active Substance: DOLUTEGRAVIR SODIUM
  7. LISINOPRIL. [Concomitant]
     Active Substance: LISINOPRIL
  8. ALBUTEROL [SALBUTAMOL] [Concomitant]
     Active Substance: ALBUTEROL
  9. INVIRASE [Concomitant]
     Active Substance: SAQUINAVIR MESYLATE
  10. VIRACEPT [Concomitant]
     Active Substance: NELFINAVIR MESYLATE
  11. ASPIRIN [ACETYLSALICYLIC ACID] [Concomitant]
     Active Substance: ASPIRIN
  12. ATORVASTATIN [Concomitant]
     Active Substance: ATORVASTATIN
  13. VIREAD [Suspect]
     Active Substance: TENOFOVIR DISOPROXIL FUMARATE
     Indication: HIV INFECTION
     Dosage: UNK
     Route: 048
     Dates: start: 2003
  14. TRUVADA [Suspect]
     Active Substance: EMTRICITABINE\TENOFOVIR DISOPROXIL FUMARATE
     Dosage: UNK
     Route: 048
     Dates: start: 2004, end: 201504
  15. BIKTARVY [Concomitant]
     Active Substance: BICTEGRAVIR SODIUM\EMTRICITABINE\TENOFOVIR ALAFENAMIDE FUMARATE
  16. KALETRA [Concomitant]
     Active Substance: LOPINAVIR\RITONAVIR
  17. ZIAGEN [Concomitant]
     Active Substance: ABACAVIR SULFATE
  18. MIRALAX [Concomitant]
     Active Substance: POLYETHYLENE GLYCOL 3350
  19. TRUVADA [Suspect]
     Active Substance: EMTRICITABINE\TENOFOVIR DISOPROXIL FUMARATE
     Indication: HIV INFECTION
     Dosage: UNK
     Route: 048
     Dates: start: 2003
  20. NORVIR [Concomitant]
     Active Substance: RITONAVIR
  21. VIDEX [Concomitant]
     Active Substance: DIDANOSINE
  22. METOPROLOL. [Concomitant]
     Active Substance: METOPROLOL
  23. TADALAFIL. [Concomitant]
     Active Substance: TADALAFIL
  24. TRUVADA [Suspect]
     Active Substance: EMTRICITABINE\TENOFOVIR DISOPROXIL FUMARATE
     Dosage: UNK
     Route: 048
     Dates: start: 201611, end: 2017
  25. ZERIT [Concomitant]
     Active Substance: STAVUDINE
  26. TRUVADA [Suspect]
     Active Substance: EMTRICITABINE\TENOFOVIR DISOPROXIL FUMARATE
     Dosage: UNK
     Route: 048
     Dates: start: 201504, end: 201611
  27. PREZISTA [Concomitant]
     Active Substance: DARUNAVIR ETHANOLATE
  28. RETROVIR [Concomitant]
     Active Substance: ZIDOVUDINE
  29. REYATAZ [Concomitant]
     Active Substance: ATAZANAVIR SULFATE
  30. COLCHICINE. [Concomitant]
     Active Substance: COLCHICINE

REACTIONS (14)
  - Hip arthroplasty [Unknown]
  - Gait disturbance [Unknown]
  - Dysstasia [Unknown]
  - Osteoporosis [Not Recovered/Not Resolved]
  - Skeletal injury [Unknown]
  - Ankle fracture [Unknown]
  - Pain [Not Recovered/Not Resolved]
  - Spinal fracture [Unknown]
  - Anhedonia [Not Recovered/Not Resolved]
  - Anxiety [Not Recovered/Not Resolved]
  - Shoulder arthroplasty [Unknown]
  - Emotional distress [Not Recovered/Not Resolved]
  - Osteopenia [Not Recovered/Not Resolved]
  - Joint range of motion decreased [Unknown]

NARRATIVE: CASE EVENT DATE: 2009
